FAERS Safety Report 17535213 (Version 2)
Quarter: 2020Q2

REPORT INFORMATION
  Report Type: Spontaneous
  Country: US (occurrence: US)
  Receive Date: 20200312
  Receipt Date: 20200409
  Transmission Date: 20200713
  Serious: No
  Sender: FDA-Public Use
  Company Number: US-AKCEA THERAPEUTICS-2019IS001823

PATIENT

DRUGS (11)
  1. ZAROXOLYN [Concomitant]
     Active Substance: METOLAZONE
  2. DOXYCYCLINE. [Concomitant]
     Active Substance: DOXYCYCLINE
  3. DEMADEX [Concomitant]
     Active Substance: TORSEMIDE
  4. MIRALAX [Concomitant]
     Active Substance: POLYETHYLENE GLYCOL 3350
  5. LOVASTATIN. [Concomitant]
     Active Substance: LOVASTATIN
  6. XARELTO [Concomitant]
     Active Substance: RIVAROXABAN
  7. TEGSEDI [Suspect]
     Active Substance: INOTERSEN SODIUM
     Indication: HEREDITARY NEUROPATHIC AMYLOIDOSIS
     Dosage: 284 MG, QW
     Route: 058
     Dates: start: 20191016
  8. FERROUS SULFATE. [Concomitant]
     Active Substance: FERROUS SULFATE
  9. VITAMIN D3 [Concomitant]
     Active Substance: CHOLECALCIFEROL
  10. K-DUR [Concomitant]
     Active Substance: POTASSIUM CHLORIDE
  11. INSPRA                             /01362602/ [Concomitant]
     Active Substance: MONTELUKAST SODIUM

REACTIONS (3)
  - Injection site nodule [Unknown]
  - Product dose omission [Recovered/Resolved]
  - Injection site bruising [Unknown]
